FAERS Safety Report 9053914 (Version 3)
Quarter: 2013Q4

REPORT INFORMATION
  Report Type: Report from Study
  Country: RO (occurrence: RO)
  Receive Date: 20130206
  Receipt Date: 20131017
  Transmission Date: 20140711
  Serious: Yes (Other)
  Sender: FDA-Public Use
  Company Number: RO-AMGEN-ROUCT2013006340

PATIENT
  Age: 59 Year
  Sex: Female
  Weight: 66.98 kg

DRUGS (7)
  1. ETANERCEPT [Suspect]
     Indication: RHEUMATOID ARTHRITIS
     Dosage: 50 MG, WEEKLY
     Route: 058
     Dates: start: 20121016, end: 20130101
  2. LORATADINE [Concomitant]
     Indication: ANAPHYLACTIC REACTION
     Dosage: 10 MG EVERY DAY
     Dates: start: 20121225, end: 20121228
  3. LORATADINE [Concomitant]
     Dosage: 10 MG EVERY DAY
     Dates: start: 20130101, end: 20130104
  4. LANSOPRAZOLE [Concomitant]
     Indication: HYPERTENSION
     Dosage: 3 G, AS NEEDED
     Route: 048
     Dates: start: 2010
  5. ENALAPRIL MALEATE [Concomitant]
     Indication: HYPERTENSION
     Dosage: 10 MG, 2X/DAY
     Route: 048
     Dates: start: 2010
  6. ISONIAZID [Concomitant]
     Indication: LATENT TUBERCULOSIS
     Dosage: 150 MG, 1X/DAY
     Route: 048
     Dates: start: 20120910
  7. LEFLUNOMIDE [Concomitant]
     Indication: RHEUMATOID ARTHRITIS
     Dosage: 20 MG, 1X/DAY
     Route: 048
     Dates: start: 201109

REACTIONS (1)
  - Anaphylactic reaction [Recovered/Resolved]
